FAERS Safety Report 10445493 (Version 2)
Quarter: 2014Q3

REPORT INFORMATION
  Report Type: Report from Study
  Country: DE (occurrence: DE)
  Receive Date: 20140910
  Receipt Date: 20140910
  Transmission Date: 20150326
  Serious: Yes (Death, Life-Threatening, Hospitalization)
  Sender: FDA-Public Use
  Company Number: DE-SA-2014SA068590

PATIENT
  Age: 49 Year
  Sex: Male
  Weight: 80 kg

DRUGS (8)
  1. OXYGESIC [Concomitant]
     Active Substance: OXYCODONE
     Indication: PAIN
     Route: 048
     Dates: start: 20140113
  2. LAXOBERAL [Concomitant]
     Active Substance: SODIUM PICOSULFATE
     Indication: CONSTIPATION
     Dosage: FERQUENCY: DAILY AS NEEDED
     Route: 048
     Dates: start: 201402
  3. OMEPRAZOLE. [Concomitant]
     Active Substance: OMEPRAZOLE
     Indication: PROPHYLAXIS
     Route: 048
     Dates: start: 20140113
  4. KEPPRA [Concomitant]
     Active Substance: LEVETIRACETAM
     Indication: EPILEPSY
     Route: 048
     Dates: start: 20140113
  5. FORTECORTIN [Concomitant]
     Active Substance: DEXAMETHASONE
     Indication: GLIOBLASTOMA
     Route: 048
     Dates: start: 20140113
  6. MACROGOL [Concomitant]
     Active Substance: POLYETHYLENE GLYCOLS
     Indication: CONSTIPATION
     Route: 048
     Dates: start: 20140113, end: 201402
  7. JEVTANA [Suspect]
     Active Substance: CABAZITAXEL
     Indication: GLIOBLASTOMA MULTIFORME
     Route: 042
     Dates: start: 20140203, end: 20140203
  8. IBUPROFEN. [Concomitant]
     Active Substance: IBUPROFEN
     Indication: PAIN
     Route: 048
     Dates: start: 20140113

REACTIONS (3)
  - Generalised tonic-clonic seizure [Recovered/Resolved with Sequelae]
  - Neoplasm [Fatal]
  - Neoplasm progression [Fatal]

NARRATIVE: CASE EVENT DATE: 201402
